FAERS Safety Report 5113146-X (Version None)
Quarter: 2006Q3

REPORT INFORMATION
  Report Type: 
  Country: None (occurrence: None)
  Receive Date: 20060920
  Receipt Date: 20060901
  Transmission Date: 20061208
  Serious: Yes (Hospitalization)
  Sender: FDA-Public Use
  Company Number: US200609000944

PATIENT
  Age: 58 Year
  Sex: Female
  Weight: 68.9 kg

DRUGS (1)
  1. ZYPREXA [Suspect]
     Indication: ANXIETY
     Dates: start: 20010901, end: 20030601

REACTIONS (8)
  - BLOOD CHOLESTEROL INCREASED [None]
  - BLOOD GASES ABNORMAL [None]
  - BLOOD GLUCOSE DECREASED [None]
  - BLOOD TRIGLYCERIDES INCREASED [None]
  - DIABETES MELLITUS [None]
  - HYPERTENSION [None]
  - METABOLIC DISORDER [None]
  - VISION BLURRED [None]
